FAERS Safety Report 6033985-0 (Version None)
Quarter: 2009Q1

REPORT INFORMATION
  Report Type: 
  Country: None (occurrence: None)
  Receive Date: 20090112
  Receipt Date: 20090106
  Transmission Date: 20090719
  Serious: Yes (Death, Hospitalization)
  Sender: FDA-Public Use
  Company Number: PHHO2006CO15024

PATIENT
  Sex: Male

DRUGS (6)
  1. FORADIL / FOR 258A / CGP 25827 [Suspect]
     Indication: ASTHMA
     Dosage: 1 INHALATION EVERY 12 HOURS
     Dates: start: 20020101, end: 20080520
  2. OXYGEN [Concomitant]
     Indication: CHRONIC OBSTRUCTIVE PULMONARY DISEASE
     Dosage: 12 L/DAY
  3. INFLAMMIDE [Concomitant]
     Dosage: TWICE PER DAY
  4. COMBIVENT [Concomitant]
  5. FORMOTEROL FUMARATE [Concomitant]
  6. BUDESONIDE [Concomitant]

REACTIONS (3)
  - MECHANICAL VENTILATION [None]
  - PULMONARY EMBOLISM [None]
  - RESPIRATORY DISORDER [None]
